FAERS Safety Report 25287549 (Version 1)
Quarter: 2025Q2

REPORT INFORMATION
  Report Type: Other
  Country: IT (occurrence: IT)
  Receive Date: 20250509
  Receipt Date: 20250509
  Transmission Date: 20250717
  Serious: Yes (Death)
  Sender: ESJAY PHARMA
  Company Number: IT-ESJAY PHARMA-000596

PATIENT

DRUGS (1)
  1. SOTALOL [Suspect]
     Active Substance: SOTALOL
     Indication: Supraventricular tachycardia

REACTIONS (2)
  - Foetal exposure during pregnancy [Fatal]
  - Drug ineffective [Fatal]
